FAERS Safety Report 5464656-7 (Version None)
Quarter: 2007Q3

REPORT INFORMATION
  Report Type: 
  Country: None (occurrence: None)
  Receive Date: 20070921
  Receipt Date: 20070911
  Transmission Date: 20080115
  Serious: Yes (Hospitalization)
  Sender: FDA-Public Use
  Company Number: JP-MERCK-0709USA00876

PATIENT
  Age: 15 Year
  Sex: Male

DRUGS (2)
  1. MONTELUKAST SODIUM [Suspect]
     Indication: ASTHMA
     Route: 048
     Dates: start: 20040317, end: 20070821
  2. ZYRTEC [Suspect]
     Indication: DERMATITIS ATOPIC
     Route: 048
     Dates: end: 20070821

REACTIONS (1)
  - HEPATIC FUNCTION ABNORMAL [None]
